FAERS Safety Report 19927690 (Version 1)
Quarter: 2021Q4

REPORT INFORMATION
  Report Type: Spontaneous
  Country: US (occurrence: US)
  Receive Date: 20211007
  Receipt Date: 20211007
  Transmission Date: 20220303
  Serious: No
  Sender: FDA-Public Use
  Company Number: US-INDIVIOR LIMITED-INDV-128661-2021

PATIENT
  Age: 30 Year
  Sex: Male

DRUGS (1)
  1. SUBLOCADE [Suspect]
     Active Substance: BUPRENORPHINE
     Indication: Drug dependence
     Dosage: 100 MILLIGRAM, QMO (SIX INJECTIONS)
     Route: 058
     Dates: start: 2020

REACTIONS (2)
  - Infection [Not Recovered/Not Resolved]
  - Eschar [Not Recovered/Not Resolved]

NARRATIVE: CASE EVENT DATE: 20210201
